FAERS Safety Report 5301136-3 (Version None)
Quarter: 2007Q1

REPORT INFORMATION
  Report Type: 
  Country: None (occurrence: None)
  Receive Date: 20070201
  Receipt Date: 20061221
  Transmission Date: 20070707
  Serious: No
  Sender: FDA-Public Use
  Company Number: 2006PV027279

PATIENT
  Age: 74 Year
  Sex: Female

DRUGS (5)
  1. BYETTA [Suspect]
     Indication: DIABETES MELLITUS NON-INSULIN-DEPENDENT
     Dosage: SEE IMAGE
     Route: 058
     Dates: start: 20061106, end: 20061201
  2. BYETTA [Suspect]
     Indication: DIABETES MELLITUS NON-INSULIN-DEPENDENT
     Dosage: SEE IMAGE
     Route: 058
     Dates: start: 20061201
  3. AVANDIA [Concomitant]
  4. GLIPIZIDE [Concomitant]
  5. GLUCOTROL [Concomitant]

REACTIONS (6)
  - ANOREXIA [None]
  - DIARRHOEA [None]
  - DIZZINESS [None]
  - NAUSEA [None]
  - VOMITING [None]
  - WEIGHT DECREASED [None]
